FAERS Safety Report 8473569-8 (Version None)
Quarter: 2012Q2

REPORT INFORMATION
  Report Type: 
  Country: None (occurrence: None)
  Receive Date: 20120628
  Receipt Date: 20110608
  Transmission Date: 20120825
  Serious: Yes (Death)
  Sender: FDA-Public Use
  Company Number: US-MYLANLABS-2011S1011835

PATIENT
  Age: 55 Year
  Sex: Female

DRUGS (4)
  1. CLOZAPINE [Suspect]
     Indication: PSYCHOTIC DISORDER
     Route: 048
     Dates: start: 20100914, end: 20110603
  2. SEROQUEL XR [Concomitant]
  3. OXYBUTYNIN [Concomitant]
  4. LEXAPRO [Concomitant]

REACTIONS (1)
  - DEATH [None]
